FAERS Safety Report 22293468 (Version 6)
Quarter: 2023Q2

REPORT INFORMATION
  Report Type: Spontaneous
  Country: US (occurrence: US)
  Receive Date: 20230508
  Receipt Date: 20230609
  Transmission Date: 20230721
  Serious: No
  Sender: FDA-Public Use
  Company Number: US-AMGEN-USASP2023078685

PATIENT
  Age: 73 Year
  Sex: Male
  Weight: 82.404 kg

DRUGS (2)
  1. NEULASTA [Suspect]
     Active Substance: PEGFILGRASTIM
     Indication: Prophylaxis
     Dosage: UNK
     Route: 065
  2. NEULASTA [Suspect]
     Active Substance: PEGFILGRASTIM
     Dosage: UNK
     Route: 065

REACTIONS (5)
  - Unintentional medical device removal [Unknown]
  - Application site mass [Unknown]
  - Device issue [Unknown]
  - Wrong technique in product usage process [Unknown]
  - Application site pain [Unknown]

NARRATIVE: CASE EVENT DATE: 20230504
